FAERS Safety Report 5751422-8 (Version None)
Quarter: 2008Q2

REPORT INFORMATION
  Report Type: 
  Country: None (occurrence: None)
  Receive Date: 20080527
  Receipt Date: 20080507
  Transmission Date: 20081010
  Serious: Yes (Hospitalization)
  Sender: FDA-Public Use
  Company Number: 2008AL003821

PATIENT
  Sex: Female
  Weight: 46.7205 kg

DRUGS (1)
  1. DIGOXIN [Suspect]
     Indication: HEART RATE INCREASED
     Dosage: .125 MG DAILY PO
     Route: 048

REACTIONS (7)
  - CARDIAC ARREST [None]
  - CEREBROVASCULAR ACCIDENT [None]
  - CONFUSIONAL STATE [None]
  - DIZZINESS [None]
  - GASTRIC DISORDER [None]
  - HYPOTENSION [None]
  - RESPIRATORY FAILURE [None]
